FAERS Safety Report 12722724 (Version 6)
Quarter: 2016Q4

REPORT INFORMATION
  Report Type: Spontaneous
  Country: US (occurrence: US)
  Receive Date: 20160907
  Receipt Date: 20161205
  Transmission Date: 20170207
  Serious: Yes (Life-Threatening, Hospitalization, Other)
  Sender: FDA-Public Use
  Company Number: US-ACTELION-A-US2016-141684

PATIENT
  Age: 3 Year
  Sex: Male

DRUGS (7)
  1. TRACLEER [Suspect]
     Active Substance: BOSENTAN
     Indication: PULMONARY HYPERTENSION
     Dosage: 31.25 MG, BID
     Route: 048
     Dates: start: 201404
  2. REMODULIN [Concomitant]
     Active Substance: TREPROSTINIL
     Dosage: 65 NG/KG, PER MIN
  3. CHOLECALCIFEROL [Concomitant]
     Active Substance: CHOLECALCIFEROL
     Dosage: 800 I/U, QD
     Route: 048
  4. TRACLEER [Suspect]
     Active Substance: BOSENTAN
     Dosage: 125 UNK, UNK
     Route: 048
  5. REVATIO [Suspect]
     Active Substance: SILDENAFIL CITRATE
     Indication: PRODUCT USED FOR UNKNOWN INDICATION
     Dosage: UNK
     Route: 065
  6. SILDENAFIL. [Concomitant]
     Active Substance: SILDENAFIL
     Dosage: 14 MG, TID
     Route: 048
  7. ASPIRIN. [Concomitant]
     Active Substance: ASPIRIN
     Dosage: 40.5 MG, QD
     Dates: end: 20160923

REACTIONS (19)
  - Hypoxia [Unknown]
  - Photophobia [Unknown]
  - Vomiting [Unknown]
  - Haemoglobin decreased [Unknown]
  - Dysphemia [Unknown]
  - Seizure [Unknown]
  - Haematochezia [Recovering/Resolving]
  - Croup infectious [Unknown]
  - Generalised tonic-clonic seizure [Unknown]
  - Haematemesis [Recovering/Resolving]
  - Middle ear effusion [Unknown]
  - Infusion site reaction [Unknown]
  - Unresponsive to stimuli [Unknown]
  - Pyrexia [Unknown]
  - Inappropriate schedule of drug administration [Recovering/Resolving]
  - Deafness [Unknown]
  - Hypoventilation [Unknown]
  - Faeces discoloured [Recovering/Resolving]
  - Flushing [Unknown]

NARRATIVE: CASE EVENT DATE: 201606
